FAERS Safety Report 7153124-2 (Version None)
Quarter: 2010Q4

REPORT INFORMATION
  Report Type: 
  Country: None (occurrence: None)
  Receive Date: 20101213
  Receipt Date: 20101202
  Transmission Date: 20110411
  Serious: Yes (Other)
  Sender: FDA-Public Use
  Company Number: PHHY2010US82240

PATIENT
  Sex: Female

DRUGS (5)
  1. NEORAL [Suspect]
     Indication: RHEUMATOID ARTHRITIS
     Dosage: 100 MG, BID
     Dates: start: 20101116, end: 20101117
  2. LISINOPRIL [Concomitant]
  3. VICODIN [Concomitant]
  4. PREDNISONE [Concomitant]
     Dosage: 5 MG
  5. ESTRADIOL [Concomitant]

REACTIONS (6)
  - BLOOD PRESSURE INCREASED [None]
  - DEPRESSION [None]
  - DYSPNOEA [None]
  - FEELING HOT [None]
  - GAIT DISTURBANCE [None]
  - PALPITATIONS [None]
